FAERS Safety Report 18511863 (Version 1)
Quarter: 2020Q4

REPORT INFORMATION
  Report Type: Spontaneous
  Country: US (occurrence: US)
  Receive Date: 20201117
  Receipt Date: 20201117
  Transmission Date: 20210114
  Serious: No
  Sender: FDA-Public Use
  Company Number: US-MILLICENT HOLDINGS LTD.-MILL20201028

PATIENT
  Age: 63 Year
  Sex: Female

DRUGS (3)
  1. INTRAROSA [Suspect]
     Active Substance: PRASTERONE
     Indication: ATROPHIC VULVOVAGINITIS
     Route: 067
     Dates: start: 202006, end: 202007
  2. METOPROLOL. [Concomitant]
     Active Substance: METOPROLOL
     Indication: PRODUCT USED FOR UNKNOWN INDICATION
     Dosage: UNKNOWN
     Route: 065
  3. INTRAROSA [Suspect]
     Active Substance: PRASTERONE
     Route: 067
     Dates: start: 2019, end: 2019

REACTIONS (8)
  - Hot flush [Not Recovered/Not Resolved]
  - Adverse reaction [Unknown]
  - Off label use [Unknown]
  - Vulvovaginal pruritus [Recovered/Resolved]
  - Vaginal discharge [Recovered/Resolved]
  - Vulvovaginal inflammation [Recovered/Resolved]
  - Insomnia [Recovered/Resolved]
  - Pollakiuria [Recovered/Resolved]

NARRATIVE: CASE EVENT DATE: 2019
